FAERS Safety Report 9604224 (Version 2)
Quarter: 2014Q1

REPORT INFORMATION
  Report Type: Report from Study
  Country: MX (occurrence: MX)
  Receive Date: 20131008
  Receipt Date: 20140131
  Transmission Date: 20141002
  Serious: Yes (Hospitalization)
  Sender: FDA-Public Use
  Company Number: MX-ROCHE-1285802

PATIENT
  Age: 49 Year
  Sex: Female

DRUGS (2)
  1. XELODA [Suspect]
     Indication: COLORECTAL CANCER
     Route: 048
     Dates: end: 201303
  2. RADIOTHERAPY [Concomitant]
     Indication: COLORECTAL CANCER
     Dosage: 24 SESSIONS
     Route: 065
     Dates: start: 201205, end: 201206

REACTIONS (5)
  - Disease progression [Unknown]
  - Proctalgia [Unknown]
  - Paraesthesia [Not Recovered/Not Resolved]
  - Hypothermia [Recovered/Resolved]
  - Carpal tunnel syndrome [Not Recovered/Not Resolved]
